FAERS Safety Report 12098713 (Version 2)
Quarter: 2017Q2

REPORT INFORMATION
  Report Type: Spontaneous
  Country: US (occurrence: US)
  Receive Date: 20160222
  Receipt Date: 20170623
  Transmission Date: 20170829
  Serious: No
  Sender: FDA-Public Use
  Company Number: US-APOTEX-2014AP005874

PATIENT
  Sex: Female
  Weight: 50 kg

DRUGS (1)
  1. ATORVASTATIN CALCIUM. [Suspect]
     Active Substance: ATORVASTATIN CALCIUM
     Indication: HYPERTENSION
     Dosage: 10 MG, QD
     Route: 065
     Dates: start: 2014

REACTIONS (5)
  - Drug ineffective for unapproved indication [Unknown]
  - Product substitution issue [Unknown]
  - Drug dose omission [Recovered/Resolved]
  - Malaise [Unknown]
  - Hypertension [Recovered/Resolved]
